FAERS Safety Report 5887456-2 (Version None)
Quarter: 2008Q3

REPORT INFORMATION
  Report Type: 
  Country: None (occurrence: None)
  Receive Date: 20080917
  Receipt Date: 20080917
  Transmission Date: 20090109
  Serious: Yes (Other)
  Sender: FDA-Public Use
  Company Number: None

PATIENT
  Age: 44 Year
  Sex: Male
  Weight: 102.0593 kg

DRUGS (1)
  1. CYMBALTA [Suspect]
     Indication: BIPOLAR II DISORDER
     Dates: start: 20070601

REACTIONS (7)
  - ANGER [None]
  - COGNITIVE DISORDER [None]
  - DRUG WITHDRAWAL SYNDROME [None]
  - NAUSEA [None]
  - PAIN [None]
  - PARAESTHESIA [None]
  - VOMITING [None]
